FAERS Safety Report 19414004 (Version 3)
Quarter: 2022Q2

REPORT INFORMATION
  Report Type: Spontaneous
  Country: DE (occurrence: DE)
  Receive Date: 20210615
  Receipt Date: 20220609
  Transmission Date: 20220721
  Serious: Yes (Hospitalization, Other)
  Sender: FDA-Public Use
  Company Number: DE-002147023-PHHY2018DE025410

PATIENT
  Age: 61 Year
  Sex: Female
  Weight: 50 kg

DRUGS (5)
  1. LETROZOLE [Suspect]
     Active Substance: LETROZOLE
     Indication: Breast cancer metastatic
     Dosage: 2.5 MILLIGRAM, ONCE A DAY
     Route: 048
     Dates: start: 20180119
  2. KISQALI [Suspect]
     Active Substance: RIBOCICLIB
     Indication: Breast cancer metastatic
     Dosage: 600 MILLIGRAM, ONCE A DAY
     Route: 048
     Dates: start: 20180118, end: 20180207
  3. KISQALI [Suspect]
     Active Substance: RIBOCICLIB
     Dosage: 600 MILLIGRAM, ONCE A DAY
     Route: 048
     Dates: start: 20180119, end: 20181231
  4. KISQALI [Suspect]
     Active Substance: RIBOCICLIB
     Dosage: 600 MILLIGRAM, ONCE A DAY
     Route: 048
     Dates: start: 20190122
  5. ASPIRIN [Concomitant]
     Active Substance: ASPIRIN
     Indication: Cerebral ischaemia
     Dosage: 1 DOSAGE FORM, ONCE A DAY
     Route: 065
     Dates: start: 20171222

REACTIONS (14)
  - Cerebral infarction [Recovering/Resolving]
  - Cerebral ischaemia [Recovered/Resolved]
  - Cerebral artery embolism [Recovering/Resolving]
  - Leukopenia [Recovered/Resolved]
  - Anaemia [Recovered/Resolved]
  - Urinary tract infection [Not Recovered/Not Resolved]
  - Haemoglobin decreased [Unknown]
  - Red blood cell count decreased [Unknown]
  - C-reactive protein increased [Unknown]
  - Pruritus [Recovered/Resolved]
  - Haematocrit decreased [Unknown]
  - Blood sodium decreased [Unknown]
  - White blood cell count decreased [Unknown]
  - Basal ganglia infarction [Unknown]

NARRATIVE: CASE EVENT DATE: 20180201
